FAERS Safety Report 15284754 (Version 1)
Quarter: 2018Q3

REPORT INFORMATION
  Report Type: Spontaneous
  Country: FR (occurrence: FR)
  Receive Date: 20180816
  Receipt Date: 20180816
  Transmission Date: 20181010
  Serious: Yes (Hospitalization)
  Sender: FDA-Public Use
  Company Number: FR-TEVA-2018-FR-941531

PATIENT
  Age: 36 Year
  Sex: Male
  Weight: 59.5 kg

DRUGS (17)
  1. BRICANYL [Concomitant]
     Active Substance: TERBUTALINE SULFATE
  2. CANCIDAS [Concomitant]
     Active Substance: CASPOFUNGIN ACETATE
  3. EUPANTOL [Concomitant]
     Active Substance: PANTOPRAZOLE SODIUM
  4. TRAMADOL (CHLORHYDRATE DE) [Suspect]
     Active Substance: TRAMADOL HYDROCHLORIDE
     Indication: PAIN
     Route: 048
     Dates: start: 20180508, end: 20180607
  5. SOLUMEDROL 40 MG/2 ML, LYOPHILISAT ET SOLUTION POUR USAGE PARENT?RAL [Concomitant]
  6. VALACICLOVIR [Concomitant]
     Active Substance: VALACYCLOVIR HYDROCHLORIDE
  7. CLAMOXYL [Concomitant]
  8. DUPHALAC [Concomitant]
     Active Substance: LACTULOSE
  9. ATROVENT [Concomitant]
     Active Substance: IPRATROPIUM BROMIDE
  10. BACTRIM [Concomitant]
     Active Substance: SULFAMETHOXAZOLE\TRIMETHOPRIM
  11. MYCOPHENOLATE MOFETIL. [Concomitant]
     Active Substance: MYCOPHENOLATE MOFETIL
  12. LOVENOX [Concomitant]
     Active Substance: ENOXAPARIN SODIUM
  13. BROMAZEPAM [Concomitant]
     Active Substance: BROMAZEPAM
  14. STILNOX 10 MG, COMPRIM? PELLICUL? S?CABLE [Concomitant]
     Active Substance: ZOLPIDEM TARTRATE
  15. NEGABAN [Suspect]
     Active Substance: TEMOCILLIN
     Indication: LUNG INFECTION
     Route: 042
     Dates: start: 20180601, end: 20180607
  16. CALCIUM (CARBONATE DE) [Concomitant]
  17. LEDERFOLINE 25 MG, COMPRIM? [Concomitant]

REACTIONS (2)
  - Gamma-glutamyltransferase increased [Recovering/Resolving]
  - Hypertransaminasaemia [Recovering/Resolving]

NARRATIVE: CASE EVENT DATE: 20180601
